FAERS Safety Report 5677746-0 (Version None)
Quarter: 2008Q1

REPORT INFORMATION
  Report Type: 
  Country: None (occurrence: None)
  Receive Date: 20080324
  Receipt Date: 20071012
  Transmission Date: 20080703
  Serious: No
  Sender: FDA-Public Use
  Company Number: US-ABBOTT-07P-163-0420614-00

PATIENT
  Sex: Female
  Weight: 58.566 kg

DRUGS (2)
  1. BIAXIN XL [Suspect]
     Indication: SINUSITIS
     Route: 048
     Dates: start: 20071010
  2. FAMOTIDINE [Concomitant]
     Indication: DYSPEPSIA
     Route: 048

REACTIONS (3)
  - ABDOMINAL PAIN [None]
  - DYSGEUSIA [None]
  - HAEMATOCHEZIA [None]
